FAERS Safety Report 4448459-8 (Version None)
Quarter: 2004Q3

REPORT INFORMATION
  Report Type: 
  Country: None (occurrence: None)
  Receive Date: 20040909
  Receipt Date: 20040825
  Transmission Date: 20050211
  Serious: Yes (Hospitalization)
  Sender: FDA-Public Use
  Company Number: 04P-130-0260171-01

PATIENT
  Age: 35 Year
  Sex: Female

DRUGS (13)
  1. HUMIRA [Suspect]
     Indication: RHEUMATOID ARTHRITIS
     Dosage: 1 IN 2 WK, SUBCUTANEOUS
     Route: 058
     Dates: start: 20030930, end: 20040428
  2. PREDNISONE [Concomitant]
  3. METHOTREXATE SODIUM [Concomitant]
  4. ARTHROTEC [Concomitant]
  5. OMEPRAZOLE [Concomitant]
  6. CALCIFEDIOL [Concomitant]
  7. ADALGUNN [Concomitant]
  8. CLONIXIN LYSINATE [Concomitant]
  9. GLUCOSAMINE SULFATE [Concomitant]
  10. SANDOCAL ^NOVARTIS^ [Concomitant]
  11. SALCAT [Concomitant]
  12. ACETYLSALICYLIC ACID [Concomitant]
  13. AMOXICILLIN AND CLAVULANATE POTASSIUM [Concomitant]

REACTIONS (14)
  - CONFUSIONAL STATE [None]
  - DISINHIBITION [None]
  - DYSARTHRIA [None]
  - ENCEPHALITIS [None]
  - FACIAL PARESIS [None]
  - HEMIPARESIS [None]
  - HERPES SIMPLEX [None]
  - HYPERREFLEXIA [None]
  - MENINGITIS [None]
  - MUSCULOSKELETAL STIFFNESS [None]
  - NEGLECT OF PERSONAL APPEARANCE [None]
  - PARAESTHESIA [None]
  - RESPIRATORY TRACT INFECTION [None]
  - VASCULITIS CEREBRAL [None]
